FAERS Safety Report 23670403 (Version 1)
Quarter: 2024Q1

REPORT INFORMATION
  Report Type: Report from Study
  Country: US (occurrence: US)
  Receive Date: 20240325
  Receipt Date: 20240325
  Transmission Date: 20240410
  Serious: Yes (Hospitalization, Other)
  Sender: FDA-Public Use
  Company Number: US-BEIGENE-BGN-2023-009553

PATIENT

DRUGS (3)
  1. BRUKINSA [Suspect]
     Active Substance: ZANUBRUTINIB
     Indication: Chronic lymphocytic leukaemia
     Dosage: 160 MILLIGRAM, BID
     Route: 048
     Dates: start: 20230403
  2. BRUKINSA [Suspect]
     Active Substance: ZANUBRUTINIB
     Dosage: 80 MILLIGRAM (1 IN THE MORNING AND 1 IN THE EVENING), BID
  3. BRUKINSA [Suspect]
     Active Substance: ZANUBRUTINIB
     Dosage: 80 MILLIGRAM, QD
     Route: 048
     Dates: start: 202401

REACTIONS (12)
  - Hip fracture [Unknown]
  - Intramedullary rod insertion [Unknown]
  - Stress fracture [Unknown]
  - Haemorrhage [Unknown]
  - Limb injury [Unknown]
  - White blood cell count decreased [Unknown]
  - Fall [Unknown]
  - Iron deficiency [Unknown]
  - Oral blood blister [Unknown]
  - Blood blister [Unknown]
  - Eczema [Unknown]
  - Purpura [Unknown]

NARRATIVE: CASE EVENT DATE: 20230822
